FAERS Safety Report 11108721 (Version 1)
Quarter: 2015Q2

REPORT INFORMATION
  Report Type: Spontaneous
  Country: US (occurrence: None)
  Receive Date: 20150511
  Receipt Date: 20150511
  Transmission Date: 20150821
  Serious: Yes (Hospitalization)
  Sender: FDA-Public Use
  Company Number: None

PATIENT
  Age: 34 Year
  Sex: Female
  Weight: 62.14 kg

DRUGS (6)
  1. ZYRTEC [Suspect]
     Active Substance: CETIRIZINE HYDROCHLORIDE
     Indication: URTICARIA
     Dosage: 1 PILL DAILY, ONCE IN MORNING, BY MOUTH VIA TABLET WITH WATER
     Route: 048
     Dates: start: 201408, end: 20150304
  2. MULTI-VITAMIN [Concomitant]
     Active Substance: .ALPHA.-TOCOPHEROL ACETATE, DL-\ASCORBIC ACID\CYANOCOBALAMIN\FLUORIDE ION\FOLIC ACID\NIACIN\PYRIDOXINE\RIBOFLAVIN\THIAMINE\VITAMIN A\VITAMIN D
  3. FISH OIL [Concomitant]
     Active Substance: FISH OIL
  4. MILK THRISTLE [Concomitant]
  5. ZYRTEC [Suspect]
     Active Substance: CETIRIZINE HYDROCHLORIDE
     Indication: BACTERIAL INFECTION
     Dosage: 1 PILL DAILY, ONCE IN MORNING, BY MOUTH VIA TABLET WITH WATER
     Route: 048
     Dates: start: 201408, end: 20150304
  6. PRIMROSE EXTRACT. [Concomitant]
     Active Substance: PRIMROSE EXTRACT

REACTIONS (17)
  - Burning sensation [None]
  - Withdrawal syndrome [None]
  - Drug dependence [None]
  - Nasopharyngitis [None]
  - Skin discolouration [None]
  - Angioedema [None]
  - Economic problem [None]
  - Pruritus generalised [None]
  - Dyspnoea [None]
  - Pain [None]
  - Urticaria [None]
  - Nervous system disorder [None]
  - Food allergy [None]
  - Chills [None]
  - Loss of employment [None]
  - Fluid retention [None]
  - Condition aggravated [None]

NARRATIVE: CASE EVENT DATE: 201408
